FAERS Safety Report 7361246-6 (Version None)
Quarter: 2011Q1

REPORT INFORMATION
  Report Type: 
  Country: None (occurrence: None)
  Receive Date: 20110318
  Receipt Date: 20110307
  Transmission Date: 20110831
  Serious: Yes (Death, Hospitalization, Other)
  Sender: FDA-Public Use
  Company Number: PHEH2007US07262

PATIENT
  Sex: Female
  Weight: 75.2 kg

DRUGS (38)
  1. ULTRACET [Concomitant]
  2. CARDIZEM [Concomitant]
  3. NEXIUM [Concomitant]
  4. FORTEO [Concomitant]
  5. TYLENOL-500 [Concomitant]
  6. TYLENOL PM [Concomitant]
  7. NORTRIPTYLINE [Concomitant]
  8. VITAMIN B6 [Concomitant]
  9. HYDROCHLOROTHIAZIDE [Concomitant]
     Dosage: 12.5 MG, QD
     Route: 048
  10. PRINIVIL [Concomitant]
  11. KENALOG [Concomitant]
  12. PREDNISONE TAB [Concomitant]
  13. CALCIUM [Concomitant]
  14. LIDODERM [Concomitant]
     Route: 062
  15. FENTANYL [Concomitant]
     Route: 062
  16. MORPHINE SULFATE [Concomitant]
  17. NEOSPORIN (NEOMYCIN SULFATE/POLYMYXIN B SULFATE) [Concomitant]
  18. ELAVIL [Concomitant]
  19. NEURONTIN [Concomitant]
     Dosage: 300 MG, BID
     Route: 048
  20. DOXYCYCLINE [Concomitant]
  21. HYDROCODONE BITARTRATE [Concomitant]
  22. ULTRAM [Concomitant]
  23. VICODIN [Concomitant]
  24. AMOXICILLIN [Concomitant]
  25. SIMVASTATIN [Concomitant]
  26. PRAVACHOL [Concomitant]
  27. THIAMINE [Concomitant]
  28. LISINOPRIL [Concomitant]
     Dosage: 20 MG, QD
     Route: 048
  29. TRICOR [Concomitant]
  30. ALKERAN [Concomitant]
  31. OXYCODONE HCL [Concomitant]
  32. FOLIC ACID [Concomitant]
  33. PHENERGAN [Concomitant]
  34. ZOMETA [Suspect]
     Indication: MULTIPLE MYELOMA
     Dosage: 3.3 MG MONTHLY
     Route: 042
     Dates: start: 20060705, end: 20061101
  35. LYRICA [Concomitant]
  36. METRONIDAZOLE [Concomitant]
  37. VITAMIN B-12 [Concomitant]
  38. VYTORIN [Concomitant]

REACTIONS (31)
  - ATRIAL FIBRILLATION [None]
  - HYPOXIA [None]
  - DYSPNOEA [None]
  - MULTIPLE MYELOMA [None]
  - URINARY TRACT INFECTION [None]
  - RESPIRATORY FAILURE [None]
  - VIRAL INFECTION [None]
  - NAUSEA [None]
  - PNEUMONIA [None]
  - DEHYDRATION [None]
  - MENISCUS LESION [None]
  - METASTASES TO SPINE [None]
  - MULTI-ORGAN FAILURE [None]
  - HYPOKALAEMIA [None]
  - NECK PAIN [None]
  - ANAEMIA [None]
  - PLEURAL EFFUSION [None]
  - NEUROPATHY PERIPHERAL [None]
  - CATARACT [None]
  - HYPERCALCAEMIA [None]
  - COMPRESSION FRACTURE [None]
  - MUSCULOSKELETAL CHEST PAIN [None]
  - OSTEONECROSIS OF JAW [None]
  - CARDIAC FAILURE CONGESTIVE [None]
  - LUNG INFILTRATION [None]
  - RENAL FAILURE [None]
  - ATELECTASIS [None]
  - ASTHENIA [None]
  - INTERVERTEBRAL DISC DISORDER [None]
  - PAIN IN JAW [None]
  - VERTIGO [None]
